FAERS Safety Report 9750890 (Version 1)
Quarter: 2013Q4

REPORT INFORMATION
  Report Type: Other
  Country: US (occurrence: US)
  Receive Date: 20131212
  Receipt Date: 20131212
  Transmission Date: 20140711
  Serious: Yes (Other)
  Sender: FDA-Public Use
  Company Number: US-BRISTOL-MYERS SQUIBB COMPANY-19913060

PATIENT
  Age: 5 Month
  Sex: Female

DRUGS (4)
  1. CARBOPLATIN INJECTION [Suspect]
     Indication: RETINOBLASTOMA
     Dosage: 9CYCLES,1DF: 2 ML (10 MG/ML),PERIOCULAR
  2. ETOPOSIDE [Suspect]
     Indication: RETINOBLASTOMA
     Dosage: 9CYCLES
  3. VINCRISTINE [Suspect]
     Indication: RETINOBLASTOMA
     Dosage: 9CYCLES
  4. CYCLOSPORINE [Suspect]
     Indication: RETINOBLASTOMA
     Dosage: 9CYCLES

REACTIONS (1)
  - Ocular vascular disorder [Unknown]
